FAERS Safety Report 7660033-9 (Version None)
Quarter: 2011Q3

REPORT INFORMATION
  Report Type: 
  Country: None (occurrence: None)
  Receive Date: 20110805
  Receipt Date: 20110801
  Transmission Date: 20111222
  Serious: Yes (Death)
  Sender: FDA-Public Use
  Company Number: CN-ASTRAZENECA-2011SE44985

PATIENT
  Sex: Female

DRUGS (4)
  1. LIDOCAINE [Suspect]
     Indication: EPIDURAL ANAESTHESIA
     Dosage: 70 MG OR 80 MG OR 100 MG
     Route: 008
  2. LIDOCAINE [Suspect]
     Dosage: 70 MG OR 80 MG OR 100 MG
  3. LIDOCAINE [Suspect]
     Indication: LOCAL ANAESTHESIA
     Dosage: 70 MG OR 80 MG OR 100 MG
     Route: 008
  4. LIDOCAINE [Suspect]
     Dosage: 70 MG OR 80 MG OR 100 MG

REACTIONS (1)
  - ANAPHYLACTIC SHOCK [None]
